FAERS Safety Report 15235645 (Version 1)
Quarter: 2018Q3

REPORT INFORMATION
  Report Type: Report from Study
  Country: US (occurrence: US)
  Receive Date: 20180803
  Receipt Date: 20180803
  Transmission Date: 20181010
  Serious: Yes (Other)
  Sender: FDA-Public Use
  Company Number: US-AMGEN-USASL2018104562

PATIENT
  Age: 63 Year
  Sex: Female

DRUGS (4)
  1. ENBREL [Suspect]
     Active Substance: ETANERCEPT
     Indication: RHEUMATOID ARTHRITIS
     Dosage: 50 MG, QWK
     Route: 065
  2. METHOTREXATE. [Suspect]
     Active Substance: METHOTREXATE
     Indication: PRODUCT USED FOR UNKNOWN INDICATION
     Dosage: UNK
     Route: 065
     Dates: end: 201805
  3. ENBREL [Suspect]
     Active Substance: ETANERCEPT
     Indication: OSTEOPOROSIS
  4. ENBREL [Suspect]
     Active Substance: ETANERCEPT
     Indication: PATHOLOGICAL FRACTURE

REACTIONS (1)
  - Anaemia [Unknown]
